FAERS Safety Report 18123918 (Version 2)
Quarter: 2020Q3

REPORT INFORMATION
  Report Type: Report from Study
  Country: None (occurrence: US)
  Receive Date: 20200807
  Receipt Date: 20200810
  Transmission Date: 20201103
  Serious: Yes (Other)
  Sender: FDA-Public Use
  Company Number: US-ABBVIE-19K-163-2895064-00

PATIENT
  Sex: Female

DRUGS (4)
  1. HUMIRA [Suspect]
     Active Substance: ADALIMUMAB
     Indication: COLITIS ULCERATIVE
     Route: 058
     Dates: start: 20190415
  2. VITAMIN C [Suspect]
     Active Substance: ASCORBIC ACID
     Indication: PRODUCT USED FOR UNKNOWN INDICATION
     Route: 065
  3. HUMIRA [Suspect]
     Active Substance: ADALIMUMAB
     Indication: COLITIS ULCERATIVE
     Dosage: CITRATE FREE
     Route: 058
     Dates: start: 2020
  4. HUMIRA [Suspect]
     Active Substance: ADALIMUMAB
     Route: 058
     Dates: start: 2020, end: 2020

REACTIONS (23)
  - Infection [Unknown]
  - Anxiety [Unknown]
  - Blood glucose increased [Unknown]
  - Fall [Unknown]
  - Aphthous ulcer [Not Recovered/Not Resolved]
  - Rectal haemorrhage [Not Recovered/Not Resolved]
  - Vascular injury [Unknown]
  - Constipation [Not Recovered/Not Resolved]
  - Diarrhoea [Not Recovered/Not Resolved]
  - Arthralgia [Unknown]
  - Hypoaesthesia [Unknown]
  - Nephrolithiasis [Recovering/Resolving]
  - Fatigue [Not Recovered/Not Resolved]
  - Irritability [Unknown]
  - Nephrolithiasis [Not Recovered/Not Resolved]
  - Pharyngeal ulceration [Unknown]
  - Skin ulcer [Unknown]
  - White blood cell count decreased [Unknown]
  - Abdominal pain [Not Recovered/Not Resolved]
  - Joint swelling [Unknown]
  - Red blood cell count decreased [Unknown]
  - Renal tubular acidosis [Unknown]
  - Spinal disorder [Unknown]

NARRATIVE: CASE EVENT DATE: 2019
